FAERS Safety Report 6439658-4 (Version None)
Quarter: 2009Q4

REPORT INFORMATION
  Report Type: 
  Country: None (occurrence: None)
  Receive Date: 20091112
  Receipt Date: 20091112
  Transmission Date: 20100525
  Serious: No
  Sender: FDA-Public Use
  Company Number: None

PATIENT

DRUGS (4)
  1. HUMIRA [Suspect]
     Indication: FIBROMYALGIA
     Dosage: STERILE PEN BI-WEEKLY IM
     Route: 030
     Dates: start: 20090110, end: 20091015
  2. HUMIRA [Suspect]
     Indication: RHEUMATOID ARTHRITIS
     Dosage: STERILE PEN BI-WEEKLY IM
     Route: 030
     Dates: start: 20090110, end: 20091015
  3. METHOTREXATE [Suspect]
     Indication: FIBROMYALGIA
     Dosage: INJECT 1 ML WEEKLY IM
     Route: 030
     Dates: start: 19980222, end: 20091015
  4. METHOTREXATE [Suspect]
     Indication: RHEUMATOID ARTHRITIS
     Dosage: INJECT 1 ML WEEKLY IM
     Route: 030
     Dates: start: 19980222, end: 20091015

REACTIONS (3)
  - MALAISE [None]
  - OXYGEN SATURATION DECREASED [None]
  - RESPIRATORY ARREST [None]
